FAERS Safety Report 7328220-7 (Version None)
Quarter: 2011Q1

REPORT INFORMATION
  Report Type: 
  Country: None (occurrence: None)
  Receive Date: 20110224
  Receipt Date: 20110224
  Transmission Date: 20110831
  Serious: Yes (Other)
  Sender: FDA-Public Use
  Company Number: None

PATIENT
  Sex: Female
  Weight: 114.76 kg

DRUGS (1)
  1. ATENOLOL [Suspect]
     Indication: AORTIC ANEURYSM
     Dosage: 25MG PO DAILY
     Route: 048

REACTIONS (2)
  - DYSPNOEA [None]
  - PRODUCT SUBSTITUTION ISSUE [None]
